FAERS Safety Report 10232600 (Version 1)
Quarter: 2014Q2

REPORT INFORMATION
  Report Type: Spontaneous
  Country: US (occurrence: None)
  Receive Date: 20140611
  Receipt Date: 20140611
  Transmission Date: 20141212
  Serious: Yes (Life-Threatening, Hospitalization, Disabling)
  Sender: FDA-Public Use
  Company Number: None

PATIENT
  Age: 92 Year
  Sex: Female
  Weight: 43.09 kg

DRUGS (1)
  1. AFFINITOR [Suspect]
     Indication: BREAST CANCER
     Dosage: ONE PILL, ONCE DAILY, TAKEN BY MOUTH
     Route: 048

REACTIONS (8)
  - Blister [None]
  - Fall [None]
  - Pelvic fracture [None]
  - Peripheral swelling [None]
  - Peripheral swelling [None]
  - Drug ineffective [None]
  - Lumbar vertebral fracture [None]
  - Balance disorder [None]
